FAERS Safety Report 5786903-4 (Version None)
Quarter: 2008Q2

REPORT INFORMATION
  Report Type: 
  Country: None (occurrence: None)
  Receive Date: 20080625
  Receipt Date: 20080620
  Transmission Date: 20081010
  Serious: Yes (Death, Life-Threatening, Hospitalization)
  Sender: FDA-Public Use
  Company Number: US-JNJFOC-20080203036

PATIENT
  Sex: Male
  Weight: 81.65 kg

DRUGS (13)
  1. TMC125 [Suspect]
     Route: 048
  2. TMC125 [Suspect]
     Indication: HIV INFECTION
     Dosage: TREATMENT WAS STOPPED ON THIS DATE AS THIS WAS THE LAST CONTACT WITH THE PATIENT
     Route: 048
  3. TRUVADA [Suspect]
     Indication: HIV INFECTION
     Dosage: DOSE REPORTED AS 200/300 MG
     Route: 048
  4. NORVIR [Suspect]
     Indication: HIV INFECTION
     Route: 048
  5. CRIXIVAN [Suspect]
     Indication: HIV INFECTION
  6. MK-0518 [Suspect]
     Indication: HIV INFECTION
     Route: 048
  7. PREZISTA [Concomitant]
     Indication: HIV INFECTION
     Route: 048
  8. AZITHROMYCIN [Concomitant]
  9. LEUCOVORIN CALCIUM [Concomitant]
  10. POSACONAZOLE [Concomitant]
  11. ACYCLOVIR SODIUM [Concomitant]
  12. DARAPRIM [Concomitant]
  13. SULFADIAZINE [Concomitant]

REACTIONS (3)
  - CARDIO-RESPIRATORY ARREST [None]
  - KAPOSI'S SARCOMA [None]
  - PYREXIA [None]
